FAERS Safety Report 21771582 (Version 1)
Quarter: 2022Q4

REPORT INFORMATION
  Report Type: Report from Study
  Country: MX (occurrence: MX)
  Receive Date: 20221223
  Receipt Date: 20221223
  Transmission Date: 20230113
  Serious: Yes (Hospitalization)
  Sender: FDA-Public Use
  Company Number: MX-002147023-NVSC2022MX296683

PATIENT
  Age: 70 Year
  Sex: Female
  Weight: 82 kg

DRUGS (1)
  1. ACLASTA [Suspect]
     Active Substance: ZOLEDRONIC ACID
     Indication: Osteoporosis
     Dosage: 1 DOSAGE FORM, EVERY 6 MONTHS
     Route: 042
     Dates: start: 202210, end: 202210

REACTIONS (4)
  - Herpes virus infection [Unknown]
  - Treatment failure [Unknown]
  - Weight decreased [Unknown]
  - Off label use [Unknown]

NARRATIVE: CASE EVENT DATE: 20221001
